FAERS Safety Report 25186742 (Version 3)
Quarter: 2025Q2

REPORT INFORMATION
  Report Type: Spontaneous
  Country: IT (occurrence: IT)
  Receive Date: 20250411
  Receipt Date: 20250424
  Transmission Date: 20250716
  Serious: Yes (Hospitalization)
  Sender: ABBVIE
  Company Number: IT-AMGEN-ITASP2025063260

PATIENT
  Age: 53 Year
  Sex: Female

DRUGS (3)
  1. ADALIMUMAB [Suspect]
     Active Substance: ADALIMUMAB
     Indication: Psoriasis
     Route: 058
  2. ADALIMUMAB [Suspect]
     Active Substance: ADALIMUMAB
     Indication: Psoriasis
  3. LEVOFLOXACIN [Suspect]
     Active Substance: LEVOFLOXACIN
     Indication: Pericardial effusion
     Route: 065

REACTIONS (10)
  - Pleuropericarditis [Unknown]
  - Antinuclear antibody positive [Unknown]
  - Pericardial effusion [Recovered/Resolved]
  - Pericardial rub [Recovering/Resolving]
  - Psoriasis [Recovering/Resolving]
  - Therapy interrupted [Unknown]
  - Product use in unapproved indication [Unknown]
  - Chest pain [Recovering/Resolving]
  - C-reactive protein increased [Recovering/Resolving]
  - Pleural effusion [Unknown]
